FAERS Safety Report 9376374 (Version 2)
Quarter: 2013Q3

REPORT INFORMATION
  Report Type: Spontaneous
  Country: US (occurrence: US)
  Receive Date: 20130701
  Receipt Date: 20130912
  Transmission Date: 20140515
  Serious: Yes (Other)
  Sender: FDA-Public Use
  Company Number: US-AMGEN-USASP2013044859

PATIENT
  Age: 41 Year
  Sex: Female
  Weight: 53.52 kg

DRUGS (9)
  1. ENBREL [Suspect]
     Indication: RHEUMATOID ARTHRITIS
     Dosage: 50 MG/ EVERY 10 DAYS
     Route: 058
     Dates: start: 20050513
  2. ATENOLOL [Concomitant]
     Indication: MIGRAINE
     Dosage: 25 MG, QD
     Route: 048
     Dates: start: 2001
  3. PRENATAL VITAMINS                  /07499601/ [Concomitant]
     Indication: PREGNANCY
     Dosage: 1 DF, QD
     Route: 048
     Dates: start: 201101
  4. MIRALAX                            /00754501/ [Concomitant]
     Indication: CONSTIPATION
     Dosage: 17 G, QD
     Route: 048
     Dates: start: 200310
  5. FIORICET [Concomitant]
     Indication: MIGRAINE
     Dosage: 1-2 TABLET, PRN
     Route: 048
     Dates: start: 200708
  6. VITAMIN B12                        /00056201/ [Concomitant]
     Indication: NAUSEA
     Dosage: 1 DF, QD
     Route: 048
     Dates: start: 200611
  7. VITAMIN B12                        /00056201/ [Concomitant]
     Indication: VOMITING
  8. UNISOM                             /00000402/ [Concomitant]
     Indication: NAUSEA
     Dosage: 1 DF, QD
     Route: 048
     Dates: end: 20110609
  9. UNISOM                             /00000402/ [Concomitant]
     Indication: VOMITING

REACTIONS (2)
  - Abortion spontaneous [Recovered/Resolved]
  - Cervical incompetence [Unknown]
